FAERS Safety Report 9144692 (Version 1)
Quarter: 2013Q1

REPORT INFORMATION
  Report Type: Spontaneous
  Country: GB (occurrence: GB)
  Receive Date: 20130306
  Receipt Date: 20130306
  Transmission Date: 20140127
  Serious: Yes (Other)
  Sender: FDA-Public Use
  Company Number: GB-BAUSCH-BL-2013-001363

PATIENT
  Sex: Female

DRUGS (1)
  1. YELLOX [Suspect]
     Indication: CYSTOID MACULAR OEDEMA
     Route: 047

REACTIONS (2)
  - Retinal artery occlusion [Unknown]
  - Off label use [Unknown]
